FAERS Safety Report 10728972 (Version 1)
Quarter: 2015Q1

REPORT INFORMATION
  Report Type: Report from Study
  Country: US (occurrence: US)
  Receive Date: 20150122
  Receipt Date: 20150122
  Transmission Date: 20150721
  Serious: Yes (Other)
  Sender: FDA-Public Use
  Company Number: US-AMGEN-USASL2015004816

PATIENT
  Age: 45 Year
  Sex: Female

DRUGS (1)
  1. ENBREL [Suspect]
     Active Substance: ETANERCEPT
     Indication: PSORIASIS
     Dosage: 50 MG, QWK
     Route: 065
     Dates: start: 20040601

REACTIONS (7)
  - Neoplasm skin [Unknown]
  - Skin exfoliation [Unknown]
  - Haemangioma [Unknown]
  - Psoriasis [Unknown]
  - Vasodilatation [Unknown]
  - Benign neoplasm [Unknown]
  - Erythema [Unknown]
